FAERS Safety Report 8676146 (Version 4)
Quarter: 2012Q4

REPORT INFORMATION
  Report Type: 
  Country: US (occurrence: US)
  Receive Date: 20120720
  Receipt Date: 20121019
  Transmission Date: 20130627
  Serious: Yes (Other)
  Sender: FDA-Public Use
  Company Number: US-ASTRAZENECA-2011SE45804

PATIENT
  Age: 74 Year
  Sex: Female
  Weight: 78 kg

DRUGS (19)
  1. NEXIUM [Suspect]
     Indication: GASTROOESOPHAGEAL REFLUX DISEASE
     Route: 048
     Dates: start: 2000
  2. NEXIUM [Suspect]
     Indication: GASTROOESOPHAGEAL REFLUX DISEASE
     Route: 048
     Dates: start: 2000
  3. ARIMIDEX [Suspect]
     Indication: BREAST CANCER
     Route: 048
  4. SYMBICORT PMDI [Suspect]
     Route: 055
     Dates: start: 2012
  5. MIDODRINE HCL [Concomitant]
     Indication: ORTHOSTATIC HYPERTENSION
     Dosage: As needed
  6. HYDRALAZINE [Concomitant]
     Indication: ORTHOSTATIC HYPERTENSION
     Dosage: As needed
  7. RAMIPRIL [Concomitant]
  8. METOPROLOL TARTRATE [Concomitant]
     Indication: ORTHOSTATIC HYPERTENSION
     Dosage: As needed
  9. TYLENOL [Concomitant]
     Indication: PAIN
     Dosage: EVERY 6 HOURS
  10. CALCIUM [Concomitant]
  11. ASA [Concomitant]
  12. VIT D [Concomitant]
  13. FOLIC ACID [Concomitant]
  14. B12 [Concomitant]
  15. QUESTRAN [Concomitant]
  16. ANTIVERT [Concomitant]
  17. MULTIVITAMINS [Concomitant]
  18. MEDICATION FOR VERTIGO [Concomitant]
     Indication: VERTIGO
  19. MEDICATION FOR FECAL INCONTINENCE [Concomitant]
     Indication: FAECAL INCONTINENCE

REACTIONS (12)
  - Cervix carcinoma [Unknown]
  - Breast cancer female [Unknown]
  - Cardiac disorder [Unknown]
  - Fibromyalgia [Unknown]
  - Restrictive pulmonary disease [Unknown]
  - Bronchial hyperreactivity [Unknown]
  - Orthostatic hypotension [Unknown]
  - Pain [Unknown]
  - Wound [Unknown]
  - Blood pressure increased [Unknown]
  - Diarrhoea [Unknown]
  - Malaise [Unknown]
